FAERS Safety Report 25049800 (Version 2)
Quarter: 2025Q1

REPORT INFORMATION
  Report Type: Spontaneous
  Country: US (occurrence: US)
  Receive Date: 20250307
  Receipt Date: 20250325
  Transmission Date: 20250409
  Serious: Yes (Other)
  Sender: RANBAXY
  Company Number: US-SUN PHARMACEUTICAL INDUSTRIES LTD-2025R1-497366

PATIENT
  Age: 56 Year
  Sex: Male

DRUGS (2)
  1. FENOFIBRATE [Suspect]
     Active Substance: FENOFIBRATE
     Indication: Product used for unknown indication
     Dosage: 145 MILLIGRAM, QD
     Route: 065
  2. VALSARTAN [Suspect]
     Active Substance: VALSARTAN
     Indication: Type 2 diabetes mellitus
     Dosage: 320 MILLIGRAM, QD
     Route: 065

REACTIONS (3)
  - Blood creatinine increased [Recovering/Resolving]
  - Dizziness [Unknown]
  - Palpitations [Unknown]
